FAERS Safety Report 12997667 (Version 4)
Quarter: 2017Q1

REPORT INFORMATION
  Report Type: Report from Study
  Country: US (occurrence: US)
  Receive Date: 20161205
  Receipt Date: 20170222
  Transmission Date: 20170428
  Serious: Yes (Hospitalization, Other)
  Sender: FDA-Public Use
  Company Number: US-MALLINCKRODT-T201606136

PATIENT
  Age: 83 Year
  Sex: Male

DRUGS (2)
  1. REPOSITORY CORTICOTROPIN INJECTION [Suspect]
     Active Substance: CORTICOTROPIN
     Indication: PROTEINURIA
     Dosage: 80U/1ML; EVERY 3 DAYS
     Route: 058
     Dates: start: 20161025
  2. REPOSITORY CORTICOTROPIN INJECTION [Suspect]
     Active Substance: CORTICOTROPIN
     Indication: NEPHROTIC SYNDROME
     Dosage: 80U/1ML; EVERY OTHER DAY
     Route: 058
     Dates: start: 20161025, end: 20170123

REACTIONS (21)
  - Poor quality sleep [Not Recovered/Not Resolved]
  - Insomnia [Not Recovered/Not Resolved]
  - Ageusia [Unknown]
  - Injury associated with device [Recovered/Resolved]
  - Drug ineffective [Unknown]
  - Adverse event [Not Recovered/Not Resolved]
  - Hypoaesthesia [Not Recovered/Not Resolved]
  - Bowel movement irregularity [Not Recovered/Not Resolved]
  - Asthenia [Not Recovered/Not Resolved]
  - Visual acuity reduced [Not Recovered/Not Resolved]
  - Dysphonia [Not Recovered/Not Resolved]
  - Hypokalaemia [Not Recovered/Not Resolved]
  - Weight increased [Recovering/Resolving]
  - Urine abnormality [Not Recovered/Not Resolved]
  - Hyperhidrosis [Recovered/Resolved]
  - Fluid retention [Not Recovered/Not Resolved]
  - Residual urine volume increased [Not Recovered/Not Resolved]
  - Dry mouth [Not Recovered/Not Resolved]
  - Generalised oedema [Not Recovered/Not Resolved]
  - Hyperglycaemia [Not Recovered/Not Resolved]
  - Faeces hard [Unknown]

NARRATIVE: CASE EVENT DATE: 2016
